FAERS Safety Report 13392835 (Version 2)
Quarter: 2017Q2

REPORT INFORMATION
  Report Type: Spontaneous
  Country: SI (occurrence: SI)
  Receive Date: 20170331
  Receipt Date: 20170407
  Transmission Date: 20170830
  Serious: Yes (Other)
  Sender: FDA-Public Use
  Company Number: SI-JNJFOC-20170331927

PATIENT
  Age: 87 Year
  Sex: Female

DRUGS (2)
  1. XARELTO [Suspect]
     Active Substance: RIVAROXABAN
     Indication: DEEP VEIN THROMBOSIS
     Route: 048
     Dates: start: 20170119
  2. XARELTO [Suspect]
     Active Substance: RIVAROXABAN
     Indication: DEEP VEIN THROMBOSIS
     Route: 048
     Dates: start: 20151229, end: 20160118

REACTIONS (12)
  - Dysarthria [Unknown]
  - Fibrin D dimer increased [Unknown]
  - Underdose [Unknown]
  - Skin wound [Unknown]
  - Homans^ sign positive [Recovered/Resolved]
  - Cerebral ischaemia [Unknown]
  - Transient ischaemic attack [Unknown]
  - Fibrin D dimer increased [Unknown]
  - Oedema peripheral [Recovered/Resolved]
  - Peripheral swelling [Recovered/Resolved]
  - Pain in extremity [Unknown]
  - Microangiopathy [Unknown]

NARRATIVE: CASE EVENT DATE: 20160411
